FAERS Safety Report 14383804 (Version 4)
Quarter: 2018Q1

REPORT INFORMATION
  Report Type: Spontaneous
  Country: US (occurrence: US)
  Receive Date: 20180115
  Receipt Date: 20180313
  Transmission Date: 20180509
  Serious: Yes (Other)
  Sender: FDA-Public Use
  Company Number: US-RECKITT BENCKISER HEALTHCARE INT LIMITED-RB-80549-2018

PATIENT
  Age: 68 Year
  Sex: Male

DRUGS (8)
  1. SIMVASTATIN. [Concomitant]
     Active Substance: SIMVASTATIN
     Indication: PRODUCT USED FOR UNKNOWN INDICATION
     Dosage: 1 DF, QD
     Route: 065
  2. MUCINEX [Suspect]
     Active Substance: GUAIFENESIN
     Indication: PRODUCT USED FOR UNKNOWN INDICATION
     Dosage: UNK (PATIENT TOOK 2 TABLETS AROUND 5:00 P.M. AND AROUND 2:00 A.M)
     Route: 065
     Dates: start: 20180109
  3. PRED FORTE [Concomitant]
     Active Substance: PREDNISOLONE ACETATE
     Indication: PRODUCT USED FOR UNKNOWN INDICATION
     Dosage: (INSTIL 1 DROP INTO THE RIGHT EYE 4 TIMES A DAY).
     Route: 047
  4. CARDURA [Concomitant]
     Active Substance: DOXAZOSIN MESYLATE
     Indication: PRODUCT USED FOR UNKNOWN INDICATION
     Dosage: (TAKE ONE TABLET BY MOUTH AT BED-TIME).
     Route: 048
  5. GLUCOSAMINE [Concomitant]
     Active Substance: GLUCOSAMINE
     Indication: PRODUCT USED FOR UNKNOWN INDICATION
     Dosage: 1500 MG, QD (1500 MG DAILY).
     Route: 065
  6. OCUFLOX                            /00731801/ [Concomitant]
     Indication: PRODUCT USED FOR UNKNOWN INDICATION
     Dosage: (INSTIL 1 DROP INTO THE LEFT EYE 4 TIMES A DAY).
     Route: 047
  7. AMOXICILLIN. [Concomitant]
     Active Substance: AMOXICILLIN
     Indication: OTITIS MEDIA ACUTE
     Dosage: UNK (TAKEN ONE DOSE).
     Route: 065
  8. REFRESH LIQUIGEL [Concomitant]
     Active Substance: CARBOXYMETHYLCELLULOSE SODIUM
     Indication: PRODUCT USED FOR UNKNOWN INDICATION
     Dosage: UNK, PRN (1 DROP AS NEEDED).
     Route: 065

REACTIONS (8)
  - Upper respiratory tract infection [Unknown]
  - Benign prostatic hyperplasia [Unknown]
  - Cerebral congestion [Unknown]
  - Feeling cold [Unknown]
  - Urinary retention [Recovering/Resolving]
  - Cough [Unknown]
  - Prostatic pain [Recovering/Resolving]
  - Lower urinary tract symptoms [Unknown]

NARRATIVE: CASE EVENT DATE: 201801
